FAERS Safety Report 13780879 (Version 1)
Quarter: 2017Q3

REPORT INFORMATION
  Report Type: Spontaneous
  Country: GB (occurrence: GB)
  Receive Date: 20170724
  Receipt Date: 20170724
  Transmission Date: 20171127
  Serious: Yes (Hospitalization, Other)
  Sender: FDA-Public Use
  Company Number: GB-ACCORD-056012

PATIENT
  Age: 91 Year

DRUGS (8)
  1. PERINDOPRIL [Concomitant]
     Active Substance: PERINDOPRIL
  2. OMEPRAZOLE. [Concomitant]
     Active Substance: OMEPRAZOLE
  3. LEVOTHYROXINE. [Concomitant]
     Active Substance: LEVOTHYROXINE
  4. DONEPEZIL/DONEPEZIL HYDROCHLORIDE [Suspect]
     Active Substance: DONEPEZIL HYDROCHLORIDE
     Indication: DEMENTIA ALZHEIMER^S TYPE
     Dates: start: 201607
  5. AMLODIPINE [Concomitant]
     Active Substance: AMLODIPINE BESYLATE
  6. FOLIC ACID. [Concomitant]
     Active Substance: FOLIC ACID
     Dosage: TAKE ONE ON SATURDAY^S AND SUNDAY^S
  7. QUININE [Concomitant]
     Active Substance: QUININE
  8. CALCIUM/COLECALCIFEROL [Concomitant]
     Dosage: 400 IU/1.25G

REACTIONS (3)
  - Bradycardia [Recovered/Resolved]
  - Fall [Unknown]
  - Atrioventricular block [Recovered/Resolved]
